FAERS Safety Report 21665073 (Version 2)
Quarter: 2022Q4

REPORT INFORMATION
  Report Type: Spontaneous
  Country: BE (occurrence: BE)
  Receive Date: 20221130
  Receipt Date: 20221224
  Transmission Date: 20230113
  Serious: Yes (Life-Threatening, Other)
  Sender: FDA-Public Use
  Company Number: None

PATIENT
  Age: 55 Year
  Sex: Female
  Weight: 63 kg

DRUGS (7)
  1. RISPERDAL [Suspect]
     Active Substance: RISPERIDONE
     Indication: Hypomania
     Dosage: 1 X AT DINNER THE DOCTOR RECOMMENDED A REDUCTION TO 1/2 TABLET AND THEN A TOTAL STOP FOR A WEEK, NOW
     Route: 048
     Dates: start: 20210120, end: 20210223
  2. DYDROGESTERONE\ESTRADIOL [Concomitant]
     Active Substance: DYDROGESTERONE\ESTRADIOL
  3. LEVOTHYROXINE [Concomitant]
     Active Substance: LEVOTHYROXINE
  4. ZOLPIDEM TARTRATE [Concomitant]
     Active Substance: ZOLPIDEM TARTRATE
  5. ZOLPIDEM TARTRATE [Concomitant]
     Active Substance: ZOLPIDEM TARTRATE
  6. LEVOTHYROXINE [Concomitant]
     Active Substance: LEVOTHYROXINE
  7. DYDROGESTERONE\ESTRADIOL [Concomitant]
     Active Substance: DYDROGESTERONE\ESTRADIOL

REACTIONS (10)
  - Insomnia [Not Recovered/Not Resolved]
  - Food craving [Not Recovered/Not Resolved]
  - Thinking abnormal [Not Recovered/Not Resolved]
  - Suicidal ideation [Not Recovered/Not Resolved]
  - Fall [Not Recovered/Not Resolved]
  - Aggression [Not Recovered/Not Resolved]
  - Tinnitus [Not Recovered/Not Resolved]
  - Psychomotor hyperactivity [Not Recovered/Not Resolved]
  - Delusional disorder, persecutory type [Not Recovered/Not Resolved]
  - Nightmare [Not Recovered/Not Resolved]
